FAERS Safety Report 18195395 (Version 1)
Quarter: 2020Q3

REPORT INFORMATION
  Report Type: Spontaneous
  Country: GB (occurrence: GB)
  Receive Date: 20200825
  Receipt Date: 20200825
  Transmission Date: 20201103
  Serious: Yes (Life-Threatening, Hospitalization, Disabling, Other)
  Sender: FDA-Public Use
  Company Number: GB-MYLANLABS-2020M1072776

PATIENT
  Age: 96 Year
  Sex: Female
  Weight: 76.1 kg

DRUGS (8)
  1. PARACETAMOL [Concomitant]
     Active Substance: ACETAMINOPHEN
     Dosage: AS REQUIRED
  2. TRAMADOL. [Concomitant]
     Active Substance: TRAMADOL
     Dosage: AS REQUIRED
  3. RISPERIDONE. [Suspect]
     Active Substance: RISPERIDONE
     Indication: NEUROPSYCHIATRIC SYMPTOMS
     Dosage: 250 MICROGRAM, QD (AT NIGHT)
     Route: 048
     Dates: start: 20200715, end: 20200721
  4. QUININE [Suspect]
     Active Substance: QUININE
     Indication: RESTLESS LEGS SYNDROME
     Dosage: 200MG ON (AT NIGHT) (FOR FIRST FEW DAYS WAS 300MG ON)
     Route: 048
     Dates: start: 20170916, end: 20200707
  5. RAMIPRIL. [Concomitant]
     Active Substance: RAMIPRIL
     Dosage: 10 MILLIGRAM, QD
  6. BISOPROLOL [Concomitant]
     Active Substance: BISOPROLOL
     Dosage: 10 MILLIGRAM, QD
  7. OMEPRAZOLE. [Concomitant]
     Active Substance: OMEPRAZOLE
     Dosage: 20 MILLIGRAM, QD
  8. APIXABAN [Concomitant]
     Active Substance: APIXABAN
     Dosage: 5 MILLIGRAM, QD

REACTIONS (16)
  - Rectal haemorrhage [Unknown]
  - Agitation [Unknown]
  - Amnesia [Unknown]
  - Left ventricular dysfunction [Unknown]
  - Cerebral artery occlusion [Unknown]
  - Abnormal behaviour [Unknown]
  - Movement disorder [Unknown]
  - Aggression [Unknown]
  - Cerebrovascular accident [Unknown]
  - Atrial fibrillation [Unknown]
  - Dyspnoea [Unknown]
  - Haemoglobin decreased [Unknown]
  - Cardiac failure [Not Recovered/Not Resolved]
  - Electrocardiogram QT prolonged [Not Recovered/Not Resolved]
  - Oedema [Unknown]
  - Delirium [Unknown]

NARRATIVE: CASE EVENT DATE: 20171123
